FAERS Safety Report 4661380-5 (Version None)
Quarter: 2005Q2

REPORT INFORMATION
  Report Type: 
  Country: None (occurrence: None)
  Receive Date: 20050512
  Receipt Date: 20041210
  Transmission Date: 20051028
  Serious: Yes (Other)
  Sender: FDA-Public Use
  Company Number: 05-05-0786

PATIENT
  Sex: Female

DRUGS (2)
  1. PHENYTOIN SODIUM [Suspect]
     Indication: CONVULSION
     Dates: start: 20040901, end: 20041115
  2. LYRICA [Suspect]
     Indication: NEUROPATHIC PAIN

REACTIONS (3)
  - CONVULSION [None]
  - DRUG INTERACTION [None]
  - NEUROPATHIC PAIN [None]
